FAERS Safety Report 9345899 (Version 3)
Quarter: 2013Q3

REPORT INFORMATION
  Report Type: Spontaneous
  Country: JP (occurrence: JP)
  Receive Date: 20130613
  Receipt Date: 20130717
  Transmission Date: 20140515
  Serious: Yes (Other)
  Sender: FDA-Public Use
  Company Number: JP-EISAI INC-E7389-03881-SPO-JP

PATIENT
  Age: 54 Year
  Sex: Female

DRUGS (2)
  1. HALAVEN [Suspect]
     Indication: BREAST CANCER RECURRENT
     Route: 041
     Dates: start: 20130511, end: 20130511
  2. HALAVEN [Suspect]
     Route: 041
     Dates: start: 20130619

REACTIONS (2)
  - Hepatic function abnormal [Recovered/Resolved]
  - Leukopenia [Recovered/Resolved]
